FAERS Safety Report 5103393-5 (Version None)
Quarter: 2006Q3

REPORT INFORMATION
  Report Type: 
  Country: None (occurrence: None)
  Receive Date: 20060913
  Receipt Date: 20060901
  Transmission Date: 20061208
  Serious: Yes (Hospitalization)
  Sender: FDA-Public Use
  Company Number: US-AMGEN-US192043

PATIENT
  Age: 42 Year
  Sex: Female

DRUGS (1)
  1. NEULASTA [Suspect]
     Indication: CHEMOTHERAPY
     Dates: start: 20050901, end: 20060201

REACTIONS (3)
  - ARTHRALGIA [None]
  - BONE PAIN [None]
  - GAIT DISTURBANCE [None]
